FAERS Safety Report 22898556 (Version 4)
Quarter: 2025Q4

REPORT INFORMATION
  Report Type: Report from Study
  Country: US (occurrence: US)
  Receive Date: 20230904
  Receipt Date: 20251124
  Transmission Date: 20260117
  Serious: No
  Sender: NOVARTIS
  Company Number: US-002147023-NVSC2022US228186

PATIENT
  Sex: Male

DRUGS (2)
  1. COSENTYX [Suspect]
     Active Substance: SECUKINUMAB
     Indication: Product used for unknown indication
     Dosage: 300 MG, QMO
     Route: 058
  2. SULFUR [Suspect]
     Active Substance: SULFUR
     Indication: Infection
     Dosage: UNK
     Route: 065

REACTIONS (2)
  - Adverse drug reaction [Unknown]
  - Infection [Unknown]
